FAERS Safety Report 10298430 (Version 2)
Quarter: 2014Q3

REPORT INFORMATION
  Report Type: Spontaneous
  Country: SE (occurrence: SE)
  Receive Date: 20140711
  Receipt Date: 20140711
  Transmission Date: 20150326
  Serious: Yes (Disabling, Other)
  Sender: FDA-Public Use
  Company Number: PHHY2014SE038939

PATIENT
  Sex: Female

DRUGS (6)
  1. RITALIN [Suspect]
     Active Substance: METHYLPHENIDATE HYDROCHLORIDE
     Dosage: UNK (DOSE DECRAESD)
  2. LEVAXIN [Concomitant]
     Active Substance: LEVOTHYROXINE SODIUM
     Indication: THYROID DISORDER
     Dosage: 100 MG, UNK
     Route: 048
  3. RITALIN [Suspect]
     Active Substance: METHYLPHENIDATE HYDROCHLORIDE
     Indication: OFF LABEL USE
     Dosage: UNK
  4. RITALIN [Suspect]
     Active Substance: METHYLPHENIDATE HYDROCHLORIDE
     Dosage: 80 MG
  5. LEVOTHYROXIN [Concomitant]
     Active Substance: LEVOTHYROXINE
     Indication: THYROID DISORDER
     Dosage: 100 MG, QID
  6. THYROID HORMONES [Concomitant]
     Active Substance: UNSPECIFIED INGREDIENT
     Dosage: UNK UKN, UNK

REACTIONS (30)
  - Bruxism [Recovered/Resolved]
  - Swollen tongue [Recovered/Resolved]
  - Bronchospasm [Unknown]
  - Visual impairment [Recovering/Resolving]
  - Dysuria [Recovered/Resolved]
  - Cough [Unknown]
  - Hypotension [Unknown]
  - Asthenia [Unknown]
  - Dizziness [Unknown]
  - Heart rate increased [Recovered/Resolved]
  - Lethargy [Recovered/Resolved]
  - Anxiety [Recovered/Resolved]
  - Asthma [Unknown]
  - Hyperventilation [Unknown]
  - Chest pain [Recovered/Resolved]
  - Dyspnoea [Recovered/Resolved]
  - Dry mouth [Recovered/Resolved]
  - Visual field defect [Recovering/Resolving]
  - Wheezing [Unknown]
  - Insomnia [Unknown]
  - Fatigue [Recovered/Resolved]
  - Hypertension [Unknown]
  - Erythema [Unknown]
  - Vision blurred [Recovering/Resolving]
  - Neck pain [Recovered/Resolved]
  - Headache [Recovered/Resolved]
  - Feeling abnormal [Unknown]
  - Autonomic dysreflexia [Recovered/Resolved]
  - Chest discomfort [Unknown]
  - Sneezing [Unknown]
